FAERS Safety Report 6968421-0 (Version None)
Quarter: 2010Q3

REPORT INFORMATION
  Report Type: 
  Country: None (occurrence: None)
  Receive Date: 20100901
  Receipt Date: 20100823
  Transmission Date: 20110219
  Serious: Yes (Hospitalization)
  Sender: FDA-Public Use
  Company Number: 2010SP045623

PATIENT
  Age: 66 Year
  Sex: Female

DRUGS (1)
  1. ASMANEX TWISTHALER [Suspect]
     Indication: ASTHMA
     Dosage: ; INH
     Route: 055

REACTIONS (2)
  - ASTHMA [None]
  - DRUG HYPERSENSITIVITY [None]
